FAERS Safety Report 5110390-2 (Version None)
Quarter: 2006Q3

REPORT INFORMATION
  Report Type: 
  Country: None (occurrence: None)
  Receive Date: 20060921
  Receipt Date: 20060912
  Transmission Date: 20061208
  Serious: Yes (Other)
  Sender: FDA-Public Use
  Company Number: DE-SANOFI-SYNTHELABO-A04200600921

PATIENT
  Sex: Female

DRUGS (1)
  1. STILNOX [Suspect]
     Indication: OFF LABEL USE
     Dosage: UNK
     Route: 048

REACTIONS (2)
  - MONOPLEGIA [None]
  - NAUSEA [None]
